FAERS Safety Report 13635275 (Version 1)
Quarter: 2017Q2

REPORT INFORMATION
  Report Type: Spontaneous
  Country: US (occurrence: US)
  Receive Date: 20170531
  Receipt Date: 20170531
  Transmission Date: 20170830
  Serious: No
  Sender: FDA-Public Use
  Company Number: US-ASTELLAS-1709618

PATIENT
  Age: 64 Year
  Sex: Female

DRUGS (9)
  1. LOMOTIL (UNITED STATES) [Concomitant]
     Route: 065
     Dates: start: 20160113
  2. AFRIN [Concomitant]
     Active Substance: OXYMETAZOLINE
     Route: 065
  3. AZELASTINE [Concomitant]
     Active Substance: AZELASTINE
     Route: 065
     Dates: start: 20160113
  4. DIPHENATROP [Concomitant]
     Route: 065
  5. ATROVENT NASAL AEROSOL [Concomitant]
     Route: 065
     Dates: start: 20160113
  6. TARCEVA [Suspect]
     Active Substance: ERLOTINIB HYDROCHLORIDE
     Indication: NEOPLASM MALIGNANT
     Route: 048
     Dates: start: 20160113
  7. MECLIZINE [Concomitant]
     Active Substance: MECLIZINE HYDROCHLORIDE
     Route: 065
  8. SERTRALINE [Concomitant]
     Active Substance: SERTRALINE HYDROCHLORIDE
     Route: 065
     Dates: start: 20160113
  9. LEVOTHYROXIN [Concomitant]
     Active Substance: LEVOTHYROXINE
     Dosage: 150MCG
     Route: 065
     Dates: start: 20160113

REACTIONS (2)
  - Diarrhoea [Recovered/Resolved]
  - Dry skin [Recovered/Resolved]

NARRATIVE: CASE EVENT DATE: 201602
